FAERS Safety Report 18606244 (Version 1)
Quarter: 2020Q4

REPORT INFORMATION
  Report Type: Spontaneous
  Country: VN (occurrence: VN)
  Receive Date: 20201211
  Receipt Date: 20201211
  Transmission Date: 20210114
  Serious: Yes (Other)
  Sender: FDA-Public Use
  Company Number: VN-ASTRAZENECA-2020SF65312

PATIENT

DRUGS (1)
  1. IRESSA [Suspect]
     Active Substance: GEFITINIB
     Indication: NON-SMALL CELL LUNG CANCER
     Route: 048

REACTIONS (4)
  - Cough [Unknown]
  - Non-small cell lung cancer recurrent [Unknown]
  - Fatigue [Unknown]
  - Rash [Unknown]
